FAERS Safety Report 11429206 (Version 1)
Quarter: 2015Q3

REPORT INFORMATION
  Report Type: Spontaneous
  Country: US (occurrence: US)
  Receive Date: 20150828
  Receipt Date: 20150828
  Transmission Date: 20151125
  Serious: No
  Sender: FDA-Public Use
  Company Number: US-ROCHE-1199178

PATIENT
  Sex: Male

DRUGS (3)
  1. INCIVEK [Suspect]
     Active Substance: TELAPREVIR
     Indication: CHRONIC HEPATITIS C
     Route: 065
     Dates: start: 20130207
  2. RIBAVIRIN. [Suspect]
     Active Substance: RIBAVIRIN
     Indication: CHRONIC HEPATITIS C
     Route: 048
     Dates: start: 20130207
  3. PEGASYS [Suspect]
     Active Substance: PEGINTERFERON ALFA-2A
     Indication: CHRONIC HEPATITIS C
     Route: 058
     Dates: start: 20130207

REACTIONS (19)
  - White blood cell count decreased [Unknown]
  - Nocturia [Unknown]
  - Irritability [Unknown]
  - Weight decreased [Unknown]
  - Sleep disorder [Unknown]
  - Sleep talking [Unknown]
  - Hepatomegaly [Unknown]
  - Abdominal pain upper [Unknown]
  - Decreased appetite [Unknown]
  - Tinnitus [Unknown]
  - Dyspnoea [Unknown]
  - Dry mouth [Unknown]
  - Headache [Unknown]
  - Urinary retention [Unknown]
  - Fatigue [Unknown]
  - Myalgia [Unknown]
  - Insomnia [Unknown]
  - Dysgeusia [Unknown]
  - Restless legs syndrome [Unknown]
